FAERS Safety Report 7395545-9 (Version None)
Quarter: 2011Q2

REPORT INFORMATION
  Report Type: 
  Country: None (occurrence: None)
  Receive Date: 20110405
  Receipt Date: 20090507
  Transmission Date: 20111010
  Serious: Yes (Death)
  Sender: FDA-Public Use
  Company Number: US-BAXTER-2008BH005264

PATIENT
  Age: 74 Year
  Sex: Male
  Weight: 93 kg

DRUGS (4)
  1. HEPARIN SODIUM INJECTION [Suspect]
     Indication: PRODUCT USED FOR UNKNOWN INDICATION
     Route: 040
     Dates: start: 20050827, end: 20050827
  2. HEPARIN SODIUM INJECTION [Suspect]
     Route: 040
     Dates: start: 20050827, end: 20050827
  3. HEPARIN SODIUM 5,000 UNITS IN DEXTROSE 5% [Suspect]
     Indication: PRODUCT USED FOR UNKNOWN INDICATION
     Route: 041
     Dates: start: 20050827, end: 20050827
  4. ALEVE [Concomitant]
     Indication: PRODUCT USED FOR UNKNOWN INDICATION
     Route: 065

REACTIONS (3)
  - HYPERTENSIVE HEART DISEASE [None]
  - ARTERIOSCLEROSIS CORONARY ARTERY [None]
  - MYOCARDIAL INFARCTION [None]
